FAERS Safety Report 7581381-7 (Version None)
Quarter: 2011Q2

REPORT INFORMATION
  Report Type: 
  Country: None (occurrence: None)
  Receive Date: 20110629
  Receipt Date: 20110623
  Transmission Date: 20111010
  Serious: Yes (Death, Hospitalization)
  Sender: FDA-Public Use
  Company Number: US-CELGENEUS-163-21880-11040436

PATIENT
  Sex: Male
  Weight: 75 kg

DRUGS (6)
  1. REVLIMID [Suspect]
     Dosage: 50 MILLIGRAM
     Route: 048
     Dates: start: 20110309, end: 20110322
  2. VIDAZA [Suspect]
     Dosage: 142 MILLIGRAM
     Route: 058
     Dates: start: 20110302, end: 20110308
  3. MULTI-VITAMINS [Concomitant]
     Route: 065
  4. NEXIUM [Concomitant]
     Dosage: 40 MILLIGRAM
     Route: 048
  5. NEUPOGEN [Concomitant]
     Route: 065
  6. ANTIBIOTICS [Concomitant]
     Indication: INFECTION
     Route: 065
     Dates: start: 20110301, end: 20110301

REACTIONS (2)
  - SEPSIS [None]
  - ACUTE MYELOID LEUKAEMIA [None]
